FAERS Safety Report 8105365-5 (Version None)
Quarter: 2012Q1

REPORT INFORMATION
  Report Type: 
  Country: None (occurrence: None)
  Receive Date: 20120201
  Receipt Date: 20120127
  Transmission Date: 20120608
  Serious: Yes (Other)
  Sender: FDA-Public Use
  Company Number: PHEH2012US002444

PATIENT
  Sex: Female

DRUGS (3)
  1. VIVELLE-DOT [Suspect]
     Dosage: 0.1 MG, UNK
     Route: 062
  2. CLIMARA [Suspect]
  3. VIVELLE-DOT [Suspect]
     Dosage: 0.05 MG, UNK
     Route: 062

REACTIONS (4)
  - BURNING SENSATION [None]
  - FEAR [None]
  - SCAR [None]
  - MALAISE [None]
